FAERS Safety Report 11706779 (Version 1)
Quarter: 2015Q4

REPORT INFORMATION
  Report Type: Spontaneous
  Country: US (occurrence: US)
  Receive Date: 20151104
  Receipt Date: 20151104
  Transmission Date: 20160304
  Serious: No
  Sender: FDA-Public Use
  Company Number: US-ELI_LILLY_AND_COMPANY-US201101004477

PATIENT
  Sex: Female

DRUGS (2)
  1. FORTEO [Suspect]
     Active Substance: TERIPARATIDE
     Dosage: 20 UG, DAILY (1/D)
     Dates: end: 201101
  2. FORTEO [Suspect]
     Active Substance: TERIPARATIDE
     Indication: OSTEOPOROSIS
     Dosage: 20 UG, DAILY (1/D)
     Dates: start: 20110104

REACTIONS (9)
  - Arthralgia [Unknown]
  - Malaise [Unknown]
  - Back pain [Unknown]
  - Expired product administered [Unknown]
  - Pain in extremity [Unknown]
  - Bronchitis [Unknown]
  - Intentional product misuse [Unknown]
  - Pain [Unknown]
  - Cough [Unknown]
